FAERS Safety Report 22062239 (Version 1)
Quarter: 2023Q1

REPORT INFORMATION
  Report Type: Report from Study
  Country: BR (occurrence: BR)
  Receive Date: 20230304
  Receipt Date: 20230304
  Transmission Date: 20230418
  Serious: Yes (Hospitalization, Other)
  Sender: FDA-Public Use
  Company Number: BR-ABBVIE-4129119

PATIENT
  Sex: Male
  Weight: 83 kg

DRUGS (3)
  1. RINVOQ [Suspect]
     Active Substance: UPADACITINIB
     Indication: Rheumatoid arthritis
     Route: 048
     Dates: start: 20210921, end: 20220812
  2. CIPROFLOXACIN [Concomitant]
     Active Substance: CIPROFLOXACIN
     Indication: Nodule
  3. Ethambutol hydrochloride/Isoniazid/Pyrazinamide/Rifampicin [Concomitant]
     Indication: Tuberculosis
     Dosage: 5 TABLET

REACTIONS (3)
  - Tuberculosis [Unknown]
  - Testicular mass [Recovering/Resolving]
  - Impaired healing [Recovering/Resolving]

NARRATIVE: CASE EVENT DATE: 20220101
